FAERS Safety Report 7280880-5 (Version None)
Quarter: 2010Q4

REPORT INFORMATION
  Report Type: 
  Country: None (occurrence: None)
  Receive Date: 20101221
  Receipt Date: 20091102
  Transmission Date: 20110411
  Serious: Yes (Hospitalization, Other)
  Sender: FDA-Public Use
  Company Number: WAES 0911USA00236

PATIENT
  Age: 56 Year
  Sex: Female

DRUGS (7)
  1. JANUVIA [Suspect]
     Indication: TYPE 2 DIABETES MELLITUS
     Dosage: 100 MG/DAILY/PO
     Route: 048
     Dates: start: 20070721, end: 20091015
  2. CYMBALTA [Concomitant]
  3. DIOVAN [Concomitant]
  4. LEVEMIR [Concomitant]
  5. PREVACID [Concomitant]
  6. TRICOR [Concomitant]
  7. METFORMIN HCL [Concomitant]

REACTIONS (1)
  - PANCREATITIS [None]
